FAERS Safety Report 4528850-1 (Version None)
Quarter: 2004Q4

REPORT INFORMATION
  Report Type: 
  Country: None (occurrence: None)
  Receive Date: 20041214
  Receipt Date: 20041202
  Transmission Date: 20050328
  Serious: Yes (Life-Threatening, Other)
  Sender: FDA-Public Use
  Company Number: 54756/456

PATIENT
  Age: 35 Year
  Sex: Female

DRUGS (1)
  1. LEVONELLE (OTC) COATED TABLET [Suspect]
     Indication: POST COITAL CONTRACEPTION
     Dosage: PER OS

REACTIONS (3)
  - ABORTION SPONTANEOUS [None]
  - DRUG EXPOSURE DURING PREGNANCY [None]
  - UNINTENDED PREGNANCY [None]
